FAERS Safety Report 7656795-7 (Version None)
Quarter: 2011Q3

REPORT INFORMATION
  Report Type: 
  Country: None (occurrence: None)
  Receive Date: 20110804
  Receipt Date: 20110722
  Transmission Date: 20111222
  Serious: Yes (Other)
  Sender: FDA-Public Use
  Company Number: NL-SANOFI-AVENTIS-2011SA048203

PATIENT
  Age: 80 Year
  Sex: Male
  Weight: 74 kg

DRUGS (7)
  1. DRONEDARONE HCL [Suspect]
     Indication: ATRIAL FIBRILLATION
     Route: 048
     Dates: start: 20110512, end: 20110519
  2. DIGOXIN [Concomitant]
  3. ROSUVASTATIN [Concomitant]
  4. METOPROLOL TARTRATE [Concomitant]
  5. DIGOXIN [Concomitant]
     Dates: start: 20110519
  6. ACENOCOUMAROL [Concomitant]
  7. PREDNISOLONE [Concomitant]

REACTIONS (1)
  - CARDIAC FAILURE [None]
